FAERS Safety Report 9296248 (Version 1)
Quarter: 2013Q2

REPORT INFORMATION
  Report Type: Spontaneous
  Country: US (occurrence: US)
  Receive Date: 20130517
  Receipt Date: 20130517
  Transmission Date: 20140414
  Serious: Yes (Hospitalization)
  Sender: FDA-Public Use
  Company Number: US-BAYER-2013-059327

PATIENT
  Sex: Male

DRUGS (2)
  1. PHILLIPS^ MILK OF MAGNESIA [Suspect]
     Indication: CONSTIPATION
  2. HYDROCODONE [Concomitant]

REACTIONS (2)
  - Diverticulitis [None]
  - Drug ineffective [None]
